FAERS Safety Report 7363846-6 (Version None)
Quarter: 2011Q1

REPORT INFORMATION
  Report Type: 
  Country: None (occurrence: None)
  Receive Date: 20110321
  Receipt Date: 20110316
  Transmission Date: 20110831
  Serious: Yes (Hospitalization)
  Sender: FDA-Public Use
  Company Number: FR-ROCHE-716188

PATIENT
  Sex: Male
  Weight: 64 kg

DRUGS (5)
  1. RIBAVIRIN [Suspect]
     Route: 065
     Dates: start: 20090717, end: 20100715
  2. TRUVADA [Concomitant]
     Dosage: DRUG REPORTED AS : TRUVADA 245/200
     Dates: start: 20080827
  3. NORVIR [Concomitant]
     Dosage: DRUG REPORTED AS NORVIR 100
     Dates: start: 20040528
  4. REYATAZ [Concomitant]
     Dosage: DRUG REPORTED AS REYATAZ 300
     Dates: start: 20040528
  5. PEGINTERFERON ALFA-2A [Suspect]
     Route: 065
     Dates: start: 20090717, end: 20100715

REACTIONS (1)
  - MANIA [None]
